FAERS Safety Report 11906975 (Version 5)
Quarter: 2021Q1

REPORT INFORMATION
  Report Type: Report from Study
  Country: US (occurrence: US)
  Receive Date: 20160111
  Receipt Date: 20210219
  Transmission Date: 20210419
  Serious: Yes (Hospitalization)
  Sender: FDA-Public Use
  Company Number: US-BAXTER-2016BAX000273

PATIENT
  Age: 50 Year
  Sex: Female
  Weight: 56.7 kg

DRUGS (5)
  1. PACLITAXEL. [Suspect]
     Active Substance: PACLITAXEL
     Dosage: DAY 1 OF 12 WEEKLY CYCLES DURING CHEMOTHERAPY SEGMENT 1
     Route: 042
     Dates: start: 20150722, end: 20150916
  2. DOXORUBICIN [Suspect]
     Active Substance: DOXORUBICIN
     Indication: INVASIVE DUCTAL BREAST CARCINOMA
     Dosage: DAY 1 OF FOUR 14?DAY CYCLES OR FOUR 21?DAY CYCLES DURING CHEMOTHERAPY SEGMENT 2
     Route: 042
     Dates: start: 20151014
  3. CYCLOPHOSPHAMIDE FOR INJECTION, USP [Suspect]
     Active Substance: CYCLOPHOSPHAMIDE
     Indication: INVASIVE DUCTAL BREAST CARCINOMA
     Dosage: DAY 1 OF FOUR 14?DAY CYCLES OR FOUR 21?DAY CYCLES DURING CHEMOTHERAPY SEGMENT 2
     Route: 042
     Dates: start: 20151014
  4. PACLITAXEL. [Suspect]
     Active Substance: PACLITAXEL
     Indication: INVASIVE DUCTAL BREAST CARCINOMA
     Dosage: DAY 1 OF 12 WEEKLY CYCLES DURING CHEMOTHERAPY SEGMENT 1
     Route: 042
     Dates: start: 20150722, end: 20150916
  5. PACLITAXEL. [Suspect]
     Active Substance: PACLITAXEL
     Dosage: DAY 1 OF 12 WEEKLY CYCLES DURING CHEMOTHERAPY SEGMENT 1
     Route: 042
     Dates: start: 20150722, end: 20150916

REACTIONS (3)
  - Painful respiration [Recovered/Resolved]
  - Dizziness [Recovered/Resolved]
  - Dyspnoea [Recovered/Resolved]

NARRATIVE: CASE EVENT DATE: 20151119
